FAERS Safety Report 25305852 (Version 1)
Quarter: 2025Q2

REPORT INFORMATION
  Report Type: Spontaneous
  Country: US (occurrence: US)
  Receive Date: 20250513
  Receipt Date: 20250513
  Transmission Date: 20250716
  Serious: Yes (Hospitalization, Other)
  Sender: AUROBINDO
  Company Number: US-AUROBINDO-AUR-APL-2025-023689

PATIENT
  Age: 23 Year
  Sex: Female

DRUGS (1)
  1. ACETYLCYSTEINE [Suspect]
     Active Substance: ACETYLCYSTEINE
     Indication: Acute hepatic failure
     Route: 042

REACTIONS (4)
  - Hepatic encephalopathy [Unknown]
  - Shock [Unknown]
  - Acute kidney injury [Unknown]
  - Drug ineffective [Unknown]
